FAERS Safety Report 5863668 (Version 5)
Quarter: 2012Q4

REPORT INFORMATION
  Report Type: 
  Country: US (occurrence: US)
  Receive Date: 20050819
  Receipt Date: 20121010
  Transmission Date: 20130627
  Serious: Yes (Other)
  Sender: FDA-Public Use
  Company Number: US-ASTRAZENECA-2005UW11953

PATIENT
  Age: 57 Year
  Sex: Female
  Weight: 70.3 kg

DRUGS (49)
  1. SEROQUEL [Suspect]
     Indication: AFFECTIVE DISORDER
     Dosage: 50-100 MG AT NIGHT
     Route: 048
  2. SEROQUEL [Suspect]
     Indication: BIPOLAR DISORDER
     Dosage: 50-100 MG AT NIGHT
     Route: 048
  3. SEROQUEL [Suspect]
     Indication: SLEEP DISORDER
     Dosage: 200-300 MG DAILY
     Route: 048
     Dates: start: 201205, end: 201210
  4. SEROQUEL [Suspect]
     Indication: ANXIETY
     Dosage: 200-300 MG DAILY
     Route: 048
     Dates: start: 201205, end: 201210
  5. SEROQUEL [Suspect]
     Indication: AFFECTIVE DISORDER
     Dosage: 200-300 MG DAILY
     Route: 048
     Dates: start: 201205, end: 201210
  6. SEROQUEL [Suspect]
     Indication: BIPOLAR DISORDER
     Dosage: 200-300 MG DAILY
     Route: 048
     Dates: start: 201205, end: 201210
  7. KLONOPIN [Concomitant]
     Indication: ANXIETY
     Dosage: 2-4 MG DAILY
     Route: 048
  8. KLONOPIN [Concomitant]
     Indication: TREMOR
     Dosage: 2-4 MG DAILY
     Route: 048
  9. ZANAFLEX [Concomitant]
     Indication: MUSCLE SPASMS
  10. AVELOX [Concomitant]
  11. METHOTREXATE [Concomitant]
  12. AVONEX [Concomitant]
     Indication: MULTIPLE SCLEROSIS
  13. CHLORAL HYDRATE [Concomitant]
     Indication: SLEEP DISORDER
  14. FOSOMAX [Concomitant]
  15. SOMNOTE [Concomitant]
     Indication: SLEEP DISORDER
     Dosage: 500-1000 MG AT NIGHT
     Route: 048
  16. SEROQUEL [Suspect]
     Indication: SLEEP DISORDER
     Dosage: OFF AND ON
     Route: 048
     Dates: start: 200501, end: 20050811
  17. SEROQUEL [Suspect]
     Indication: ANXIETY
     Dosage: OFF AND ON
     Route: 048
     Dates: start: 200501, end: 20050811
  18. SEROQUEL [Suspect]
     Indication: AFFECTIVE DISORDER
     Dosage: OFF AND ON
     Route: 048
     Dates: start: 200501, end: 20050811
  19. SEROQUEL [Suspect]
     Indication: BIPOLAR DISORDER
     Dosage: OFF AND ON
     Route: 048
     Dates: start: 200501, end: 20050811
  20. SEROQUEL [Suspect]
     Indication: SLEEP DISORDER
     Route: 048
     Dates: start: 200511
  21. SEROQUEL [Suspect]
     Indication: ANXIETY
     Route: 048
     Dates: start: 200511
  22. SEROQUEL [Suspect]
     Indication: AFFECTIVE DISORDER
     Route: 048
     Dates: start: 200511
  23. SEROQUEL [Suspect]
     Indication: BIPOLAR DISORDER
     Route: 048
     Dates: start: 200511
  24. SEROQUEL [Suspect]
     Indication: SLEEP DISORDER
     Route: 048
  25. SEROQUEL [Suspect]
     Indication: ANXIETY
     Route: 048
  26. SEROQUEL [Suspect]
     Indication: AFFECTIVE DISORDER
     Route: 048
  27. SEROQUEL [Suspect]
     Indication: BIPOLAR DISORDER
     Route: 048
  28. SEROQUEL [Suspect]
     Indication: SLEEP DISORDER
     Route: 048
     Dates: start: 2007, end: 200805
  29. SEROQUEL [Suspect]
     Indication: ANXIETY
     Route: 048
     Dates: start: 2007, end: 200805
  30. SEROQUEL [Suspect]
     Indication: AFFECTIVE DISORDER
     Route: 048
     Dates: start: 2007, end: 200805
  31. SEROQUEL [Suspect]
     Indication: BIPOLAR DISORDER
     Route: 048
     Dates: start: 2007, end: 200805
  32. SEROQUEL [Suspect]
     Indication: SLEEP DISORDER
     Route: 048
  33. SEROQUEL [Suspect]
     Indication: ANXIETY
     Route: 048
  34. SEROQUEL [Suspect]
     Indication: AFFECTIVE DISORDER
     Route: 048
  35. SEROQUEL [Suspect]
     Indication: BIPOLAR DISORDER
     Route: 048
  36. SEROQUEL [Suspect]
     Indication: SLEEP DISORDER
     Dosage: 50 AND 150 MG DEPENDING ON HER
     Route: 048
     Dates: end: 20100417
  37. SEROQUEL [Suspect]
     Indication: ANXIETY
     Dosage: 50 AND 150 MG DEPENDING ON HER
     Route: 048
     Dates: end: 20100417
  38. SEROQUEL [Suspect]
     Indication: AFFECTIVE DISORDER
     Dosage: 50 AND 150 MG DEPENDING ON HER
     Route: 048
     Dates: end: 20100417
  39. SEROQUEL [Suspect]
     Indication: BIPOLAR DISORDER
     Dosage: 50 AND 150 MG DEPENDING ON HER
     Route: 048
     Dates: end: 20100417
  40. SEROQUEL [Suspect]
     Indication: SLEEP DISORDER
     Route: 048
  41. SEROQUEL [Suspect]
     Indication: ANXIETY
     Route: 048
  42. SEROQUEL [Suspect]
     Indication: AFFECTIVE DISORDER
     Route: 048
  43. SEROQUEL [Suspect]
     Indication: BIPOLAR DISORDER
     Route: 048
  44. SEROQUEL [Suspect]
     Indication: SLEEP DISORDER
     Route: 048
  45. SEROQUEL [Suspect]
     Indication: ANXIETY
     Route: 048
  46. SEROQUEL [Suspect]
     Indication: AFFECTIVE DISORDER
     Route: 048
  47. SEROQUEL [Suspect]
     Indication: BIPOLAR DISORDER
     Route: 048
  48. SEROQUEL [Suspect]
     Indication: SLEEP DISORDER
     Dosage: 50-100 MG AT NIGHT
     Route: 048
  49. SEROQUEL [Suspect]
     Indication: ANXIETY
     Dosage: 50-100 MG AT NIGHT
     Route: 048

REACTIONS (29)
  - Multiple sclerosis [Unknown]
  - Bulimia nervosa [Unknown]
  - Blood glucose abnormal [Unknown]
  - Incontinence [Unknown]
  - Faecaloma [Unknown]
  - Drug abuse [Unknown]
  - Gait disturbance [Not Recovered/Not Resolved]
  - Cystitis [Unknown]
  - Insomnia [Unknown]
  - Bladder disorder [Unknown]
  - Fluid retention [Unknown]
  - Nervousness [Unknown]
  - Urinary retention [Unknown]
  - Gastrointestinal motility disorder [Unknown]
  - Muscle disorder [Unknown]
  - Urine output decreased [Unknown]
  - Dehydration [Unknown]
  - Frequent bowel movements [Unknown]
  - Increased appetite [Unknown]
  - Somnolence [Unknown]
  - Constipation [Recovered/Resolved]
  - Weight increased [Unknown]
  - Blood glucose increased [Unknown]
  - Fatigue [Unknown]
  - Off label use [Unknown]
  - Drug ineffective for unapproved indication [Unknown]
  - Drug dose omission [Unknown]
  - Intentional drug misuse [Unknown]
  - Overdose [Unknown]
